FAERS Safety Report 19091394 (Version 1)
Quarter: 2021Q2

REPORT INFORMATION
  Report Type: Spontaneous
  Country: US (occurrence: US)
  Receive Date: 20210405
  Receipt Date: 20210405
  Transmission Date: 20210717
  Serious: No
  Sender: FDA-Public Use
  Company Number: US-AUROBINDO-AUR-APL-2020-010261

PATIENT
  Age: 57 Year
  Sex: Female
  Weight: 89.79 kg

DRUGS (1)
  1. TRIMETHOPRIM+SULFAMETHOXAZOLE TABLET [Suspect]
     Active Substance: SULFAMETHOXAZOLE\TRIMETHOPRIM
     Indication: EAR INFECTION
     Dosage: 500 MILLIGRAM, TWO TIMES A DAY, FOR TEN DAYS
     Route: 065
     Dates: start: 20200212, end: 20200214

REACTIONS (4)
  - Product substitution issue [Unknown]
  - Rash pruritic [Recovered/Resolved]
  - Rash macular [Recovered/Resolved]
  - Hypersensitivity [Recovered/Resolved]

NARRATIVE: CASE EVENT DATE: 20200214
